FAERS Safety Report 12840438 (Version 1)
Quarter: 2016Q4

REPORT INFORMATION
  Report Type: Spontaneous
  Country: US (occurrence: US)
  Receive Date: 20161012
  Receipt Date: 20161012
  Transmission Date: 20170207
  Serious: No
  Sender: FDA-Public Use
  Company Number: US-JUBILANT CADISTA PHARMACEUTICALS-2016JUB00273

PATIENT
  Age: 60 Year
  Sex: Female
  Weight: 88.44 kg

DRUGS (9)
  1. PREDNISONE. [Suspect]
     Active Substance: PREDNISONE
     Dosage: 1 TABLETS, 1X/DAY
     Route: 048
     Dates: end: 20160308
  2. AUGMENTIN [Suspect]
     Active Substance: AMOXICILLIN\CLAVULANATE POTASSIUM
  3. PREDNISONE. [Suspect]
     Active Substance: PREDNISONE
     Indication: DYSPNOEA
     Dosage: 3 TABLETS, 1X/DAY
     Route: 048
     Dates: start: 20160229, end: 20160302
  4. PREDNISONE. [Suspect]
     Active Substance: PREDNISONE
     Dosage: 2 TABLETS, 1X/DAY
     Route: 048
     Dates: end: 20160305
  5. PREDNISONE. [Suspect]
     Active Substance: PREDNISONE
     Dosage: 1 TABLETS, 1X/DAY
     Route: 048
     Dates: end: 20160708
  6. GLYBURIDE. [Concomitant]
     Active Substance: GLYBURIDE
     Dosage: 1.25 MG, 2X/DAY
  7. GLYBURIDE/METFORMIN [Concomitant]
     Active Substance: GLYBURIDE\METFORMIN
     Dosage: UNK, 4X/DAY
  8. PREDNISONE. [Suspect]
     Active Substance: PREDNISONE
     Dosage: 2 TABLETS, 1X/DAY
     Route: 048
     Dates: end: 20160705
  9. PREDNISONE. [Suspect]
     Active Substance: PREDNISONE
     Dosage: 3 TABLETS, 1X/DAY
     Route: 048
     Dates: end: 20160702

REACTIONS (3)
  - Fatigue [Not Recovered/Not Resolved]
  - Abdominal pain [Not Recovered/Not Resolved]
  - Blood urine present [Unknown]

NARRATIVE: CASE EVENT DATE: 20160229
